FAERS Safety Report 16826805 (Version 1)
Quarter: 2019Q3

REPORT INFORMATION
  Report Type: Spontaneous
  Country: GB (occurrence: DE)
  Receive Date: 20190919
  Receipt Date: 20190919
  Transmission Date: 20191005
  Serious: Yes (Other)
  Sender: FDA-Public Use
  Company Number: DE-BAYER-2019-169236

PATIENT
  Age: 22 Year
  Sex: Female
  Weight: 61 kg

DRUGS (1)
  1. JAYDESS [Suspect]
     Active Substance: LEVONORGESTREL
     Indication: CONTRACEPTION
     Route: 015

REACTIONS (13)
  - Panic attack [Recovering/Resolving]
  - Sleep disorder [Recovering/Resolving]
  - Loss of libido [Recovering/Resolving]
  - Suicidal ideation [Unknown]
  - Dyspnoea [Recovering/Resolving]
  - Weight increased [Recovering/Resolving]
  - Headache [Recovering/Resolving]
  - Visual impairment [Recovering/Resolving]
  - Depressed mood [Recovering/Resolving]
  - Vision blurred [Recovering/Resolving]
  - Metrorrhagia [Recovering/Resolving]
  - Depression [Unknown]
  - Palpitations [Recovering/Resolving]

NARRATIVE: CASE EVENT DATE: 201905
